FAERS Safety Report 12632260 (Version 2)
Quarter: 2016Q3

REPORT INFORMATION
  Report Type: Spontaneous
  Country: US (occurrence: US)
  Receive Date: 20160808
  Receipt Date: 20160808
  Transmission Date: 20161109
  Serious: No
  Sender: FDA-Public Use
  Company Number: US-BEH-2016062267

PATIENT
  Sex: Female
  Weight: 86 kg

DRUGS (23)
  1. ARMOUR THYROID [Concomitant]
     Active Substance: THYROID, PORCINE
  2. SIMVASTATIN. [Concomitant]
     Active Substance: SIMVASTATIN
  3. COUMADIN [Concomitant]
     Active Substance: WARFARIN SODIUM
  4. OMEPRAZOLE. [Concomitant]
     Active Substance: OMEPRAZOLE
  5. ABILIFY [Concomitant]
     Active Substance: ARIPIPRAZOLE
  6. HIZENTRA [Suspect]
     Active Substance: HUMAN IMMUNOGLOBULIN G
     Indication: IMMUNODEFICIENCY COMMON VARIABLE
     Route: 058
     Dates: start: 20150602
  7. DIPHENHYDRAMINE. [Concomitant]
     Active Substance: DIPHENHYDRAMINE
  8. HYDROCHORTHIAZIDE [Concomitant]
  9. FLONASE [Concomitant]
     Active Substance: FLUTICASONE PROPIONATE
  10. ADVAIR HFA [Concomitant]
     Active Substance: FLUTICASONE PROPIONATE\SALMETEROL XINAFOATE
  11. METOPROLOL. [Concomitant]
     Active Substance: METOPROLOL
  12. IRONUP [Concomitant]
  13. CYMBALTA [Concomitant]
     Active Substance: DULOXETINE HYDROCHLORIDE
  14. VENTOLIN [Concomitant]
     Active Substance: ALBUTEROL SULFATE
  15. CELEXA [Concomitant]
     Active Substance: CITALOPRAM HYDROBROMIDE
  16. ACETAMINOPHEN. [Concomitant]
     Active Substance: ACETAMINOPHEN
  17. LIDOCAINE. [Concomitant]
     Active Substance: LIDOCAINE
  18. EPIPEN [Concomitant]
     Active Substance: EPINEPHRINE
  19. METHYPHENIDATE [Concomitant]
  20. VITAMIN D [Concomitant]
     Active Substance: CHOLECALCIFEROL
  21. VESICARE [Concomitant]
     Active Substance: SOLIFENACIN SUCCINATE
  22. DILTIAZEM. [Concomitant]
     Active Substance: DILTIAZEM
  23. KLOR-CON [Concomitant]
     Active Substance: POTASSIUM CHLORIDE

REACTIONS (1)
  - Urinary tract infection [Unknown]
